FAERS Safety Report 8413409-6 (Version None)
Quarter: 2012Q2

REPORT INFORMATION
  Report Type: 
  Country: None (occurrence: None)
  Receive Date: 20120605
  Receipt Date: 20120529
  Transmission Date: 20120825
  Serious: Yes (Death, Other)
  Sender: FDA-Public Use
  Company Number: JP-PFIZER INC-2012125339

PATIENT
  Age: 70 Year
  Sex: Female

DRUGS (6)
  1. CYCLOPHOSPHAMIDE [Suspect]
     Indication: BREAST CANCER
     Dosage: UNK
     Route: 042
     Dates: start: 20111014, end: 20111014
  2. CYCLOPHOSPHAMIDE [Suspect]
     Dosage: UNK
     Route: 042
     Dates: start: 20111021, end: 20111021
  3. EPIRUBICIN HYDROCHLORIDE [Suspect]
     Indication: BREAST CANCER
     Dosage: 100 MG, SINGLE
     Route: 042
     Dates: start: 20111014, end: 20111014
  4. FLUOROURACIL [Suspect]
     Dosage: UNK
     Route: 042
     Dates: start: 20111021, end: 20111021
  5. FLUOROURACIL [Suspect]
     Indication: BREAST CANCER
     Dosage: UNK
     Route: 042
     Dates: start: 20111014, end: 20111014
  6. EPIRUBICIN HYDROCHLORIDE [Suspect]
     Dosage: 100 MG, SINGLE
     Route: 042
     Dates: start: 20111021, end: 20111021

REACTIONS (5)
  - PYREXIA [None]
  - CARDIAC FAILURE [None]
  - VOMITING [None]
  - OVERDOSE [None]
  - WHITE BLOOD CELL COUNT DECREASED [None]
